FAERS Safety Report 4405553-5 (Version None)
Quarter: 2004Q3

REPORT INFORMATION
  Report Type: 
  Country: None (occurrence: None)
  Receive Date: 20040723
  Receipt Date: 20030929
  Transmission Date: 20050211
  Serious: No
  Sender: FDA-Public Use
  Company Number: US-GLAXOSMITHKLINE-A0427873A

PATIENT
  Age: 80 Year
  Sex: Female

DRUGS (11)
  1. AVANDIA [Suspect]
     Dosage: 4MG PER DAY
     Route: 048
  2. AMARYL [Concomitant]
  3. IMDUR [Concomitant]
  4. ZOCOR [Concomitant]
  5. ZETIA [Concomitant]
  6. COENZYME Q10 [Concomitant]
  7. GLUCOSAMINE [Concomitant]
  8. ATENOLOL [Concomitant]
  9. AVAPRO [Concomitant]
  10. MULTI-VITAMIN [Concomitant]
  11. ACIPHEX [Concomitant]

REACTIONS (1)
  - WEIGHT INCREASED [None]
